FAERS Safety Report 5102244-2 (Version None)
Quarter: 2006Q3

REPORT INFORMATION
  Report Type: 
  Country: None (occurrence: None)
  Receive Date: 20060912
  Receipt Date: 20060906
  Transmission Date: 20061208
  Serious: Yes (Other)
  Sender: FDA-Public Use
  Company Number: US-JNJFOC-20060901482

PATIENT
  Sex: Female
  Weight: 90.72 kg

DRUGS (5)
  1. IMODIUM ADVANCED [Suspect]
  2. IMODIUM ADVANCED [Suspect]
     Indication: DIARRHOEA
  3. ATENOLOL [Concomitant]
     Indication: HYPERTENSION
     Dosage: ^^YEARS^
  4. PROZAC [Concomitant]
     Indication: DEPRESSION
     Dosage: ^YEARS^
  5. MENOPAUSE MEDICATION [Concomitant]
     Indication: MENOPAUSE
     Dosage: ONE BID FOR YEARS

REACTIONS (2)
  - FAECES DISCOLOURED [None]
  - HAEMATOCHEZIA [None]
